FAERS Safety Report 7393906-5 (Version None)
Quarter: 2011Q2

REPORT INFORMATION
  Report Type: 
  Country: None (occurrence: None)
  Receive Date: 20110405
  Receipt Date: 20110324
  Transmission Date: 20111010
  Serious: Yes (Disabling)
  Sender: FDA-Public Use
  Company Number: US-ENDO PHARMACEUTICALS INC.-METO20110325

PATIENT
  Sex: Male

DRUGS (1)
  1. METOCLOPRAMIDE HYDROCHLORIDE [Suspect]
     Dosage: UNKNOWN
     Route: 048
     Dates: start: 20040401, end: 20080201

REACTIONS (6)
  - PARKINSON'S DISEASE [None]
  - INCORRECT DRUG ADMINISTRATION DURATION [None]
  - ASTHENIA [None]
  - PARKINSONISM [None]
  - TARDIVE DYSKINESIA [None]
  - TREMOR [None]
